FAERS Safety Report 19688856 (Version 2)
Quarter: 2025Q2

REPORT INFORMATION
  Report Type: Spontaneous
  Country: US (occurrence: US)
  Receive Date: 20210811
  Receipt Date: 20250415
  Transmission Date: 20250716
  Serious: No
  Sender: SANOFI AVENTIS
  Company Number: US-SA-SAC20210806000850

PATIENT
  Age: 53 Year
  Sex: Female

DRUGS (3)
  1. DUPIXENT [Suspect]
     Active Substance: DUPILUMAB
     Indication: Dermatitis atopic
     Dosage: 300 MG, QOW
     Route: 058
     Dates: start: 202104
  2. DUREZOL [Concomitant]
     Active Substance: DIFLUPREDNATE
     Indication: Conjunctivitis
  3. DUREZOL [Concomitant]
     Active Substance: DIFLUPREDNATE
     Indication: Vision blurred

REACTIONS (3)
  - Vision blurred [Unknown]
  - Weight increased [Unknown]
  - Conjunctivitis [Unknown]

NARRATIVE: CASE EVENT DATE: 20210101
